FAERS Safety Report 9472161 (Version 3)
Quarter: 2013Q3

REPORT INFORMATION
  Report Type: Spontaneous
  Country: US (occurrence: US)
  Receive Date: 20130823
  Receipt Date: 20130911
  Transmission Date: 20140515
  Serious: No
  Sender: FDA-Public Use
  Company Number: US-009507513-1308USA007093

PATIENT
  Sex: Female
  Weight: 97.52 kg

DRUGS (1)
  1. NEXPLANON [Suspect]
     Indication: CONTRACEPTION
     Dosage: 1 ROD; 1 STANDARD PACKAGE OF PF APPLICATOR OF 1
     Route: 059
     Dates: start: 20120927, end: 20130801

REACTIONS (2)
  - Device breakage [Unknown]
  - No adverse event [Unknown]
